FAERS Safety Report 10661807 (Version 1)
Quarter: 2014Q4

REPORT INFORMATION
  Report Type: Spontaneous
  Country: US (occurrence: None)
  Receive Date: 20141217
  Receipt Date: 20141217
  Transmission Date: 20150529
  Serious: Yes (Hospitalization)
  Sender: FDA-Public Use
  Company Number: None

PATIENT
  Age: 63 Year
  Sex: Female

DRUGS (10)
  1. WARFARIN [Suspect]
     Active Substance: WARFARIN
     Indication: ATRIAL FIBRILLATION
     Route: 048
     Dates: end: 20141008
  2. ASPIRIN. [Concomitant]
     Active Substance: ASPIRIN
  3. SPIRONOLACTONE. [Concomitant]
     Active Substance: SPIRONOLACTONE
  4. ATORVASTATIN [Concomitant]
     Active Substance: ATORVASTATIN
  5. PANTOPRAZOLE [Concomitant]
     Active Substance: PANTOPRAZOLE SODIUM
  6. PREDNISONE. [Concomitant]
     Active Substance: PREDNISONE
  7. CARVEDILOL. [Concomitant]
     Active Substance: CARVEDILOL
  8. FUROSEMIDE. [Concomitant]
     Active Substance: FUROSEMIDE
  9. AMIODARONE [Concomitant]
     Active Substance: AMIODARONE
  10. AMLODIPINE [Concomitant]
     Active Substance: AMLODIPINE BESYLATE

REACTIONS (3)
  - Haematochezia [None]
  - International normalised ratio increased [None]
  - Haemoglobin decreased [None]

NARRATIVE: CASE EVENT DATE: 20141008
